FAERS Safety Report 6046845-6 (Version None)
Quarter: 2009Q1

REPORT INFORMATION
  Report Type: 
  Country: None (occurrence: None)
  Receive Date: 20090122
  Receipt Date: 20090119
  Transmission Date: 20090719
  Serious: Yes (Death)
  Sender: FDA-Public Use
  Company Number: A0764379A

PATIENT
  Age: 84 Year
  Sex: Female
  Weight: 38 kg

DRUGS (5)
  1. SERETIDE [Suspect]
     Indication: RESPIRATORY DISORDER
     Dosage: 2PUFF TWICE PER DAY
     Route: 065
     Dates: start: 20081101, end: 20090116
  2. ATROVENT [Concomitant]
     Dosage: 3PUFF THREE TIMES PER DAY
     Dates: start: 20060101, end: 20090116
  3. PREDSIM [Concomitant]
     Dates: start: 20080901, end: 20090116
  4. BECLOMETHASONE DIPROPIONATE [Concomitant]
     Dates: start: 20080901, end: 20090116
  5. ALBUTEROL SULFATE [Concomitant]
     Dates: start: 20080901, end: 20090116

REACTIONS (1)
  - DEATH [None]
